FAERS Safety Report 7519935-6 (Version None)
Quarter: 2011Q2

REPORT INFORMATION
  Report Type: 
  Country: None (occurrence: None)
  Receive Date: 20110602
  Receipt Date: 20110523
  Transmission Date: 20111010
  Serious: Yes (Hospitalization)
  Sender: FDA-Public Use
  Company Number: US-ACTELION-A-NJ2011-47577

PATIENT

DRUGS (6)
  1. VENTAVIS [Suspect]
     Dosage: UNK
     Route: 055
     Dates: start: 20110301, end: 20110101
  2. ADCIRCA [Concomitant]
  3. COUMADIN [Concomitant]
  4. TRACLEER [Suspect]
     Indication: PULMONARY ARTERIAL HYPERTENSION
     Dosage: UNK
     Route: 048
     Dates: start: 20050725
  5. VENTAVIS [Suspect]
     Indication: PULMONARY ARTERIAL HYPERTENSION
     Dosage: UNK
     Route: 055
     Dates: start: 20080804
  6. CALCIUM CHANNEL BLOCKERS [Concomitant]

REACTIONS (1)
  - HAEMOPTYSIS [None]
